FAERS Safety Report 4978144-5 (Version None)
Quarter: 2006Q2

REPORT INFORMATION
  Report Type: 
  Country: None (occurrence: None)
  Receive Date: 20060417
  Receipt Date: 20060406
  Transmission Date: 20061013
  Serious: No
  Sender: FDA-Public Use
  Company Number: 06H-163-0307243-00

PATIENT

DRUGS (1)
  1. NEO-SYNEPHRINE INJECTION (NEO-SYNEPHRINE HYDROCHLORIDE) [Suspect]
     Indication: HYPERTENSION
     Dosage: INTRAVENOUS
     Route: 042

REACTIONS (2)
  - HAEMORRHAGIC TRANSFORMATION STROKE [None]
  - MEAN ARTERIAL PRESSURE INCREASED [None]
